FAERS Safety Report 6721846-0 (Version None)
Quarter: 2010Q2

REPORT INFORMATION
  Report Type: 
  Country: None (occurrence: None)
  Receive Date: 20100512
  Receipt Date: 20100504
  Transmission Date: 20101027
  Serious: Yes (Other)
  Sender: FDA-Public Use
  Company Number: US-AMGEN-QUU404336

PATIENT
  Sex: Female
  Weight: 71.7 kg

DRUGS (4)
  1. NPLATE [Suspect]
     Indication: IDIOPATHIC THROMBOCYTOPENIC PURPURA
     Route: 058
     Dates: start: 20100125, end: 20100308
  2. IMMU-G [Concomitant]
     Route: 042
     Dates: start: 20091204
  3. RITUXAN [Concomitant]
  4. METFORMIN HYDROCHLORIDE [Concomitant]

REACTIONS (3)
  - FATIGUE [None]
  - THERAPEUTIC RESPONSE DECREASED [None]
  - THROMBOCYTOPENIA [None]
